FAERS Safety Report 8084087-3 (Version None)
Quarter: 2012Q1

REPORT INFORMATION
  Report Type: 
  Country: None (occurrence: None)
  Receive Date: 20120128
  Receipt Date: 20110207
  Transmission Date: 20120608
  Serious: No
  Sender: FDA-Public Use
  Company Number: US-ABBOTT-11P-163-0703351-00

PATIENT
  Age: 25 Year
  Sex: Female

DRUGS (1)
  1. HUMIRA [Suspect]
     Indication: CROHN'S DISEASE
     Dates: start: 20090901

REACTIONS (4)
  - FREQUENT BOWEL MOVEMENTS [None]
  - INJECTION SITE PAIN [None]
  - CROHN'S DISEASE [None]
  - ABDOMINAL PAIN [None]
